FAERS Safety Report 5320717-4 (Version None)
Quarter: 2007Q2

REPORT INFORMATION
  Report Type: 
  Country: None (occurrence: None)
  Receive Date: 20070509
  Receipt Date: 20070501
  Transmission Date: 20071010
  Serious: Yes (Hospitalization, Other)
  Sender: FDA-Public Use
  Company Number: US-PFIZER INC-2007035040

PATIENT
  Sex: Male
  Weight: 94.3 kg

DRUGS (3)
  1. GEODON [Suspect]
     Indication: MENTAL DISORDER
  2. RISPERDAL [Suspect]
     Indication: MENTAL DISORDER
  3. ALL OTHER THERAPEUTIC PRODUCTS [Concomitant]

REACTIONS (4)
  - CARDIAC FAILURE [None]
  - DRUG DEPENDENCE [None]
  - RENAL FAILURE [None]
  - RESPIRATORY FAILURE [None]
